FAERS Safety Report 5605771-4 (Version None)
Quarter: 2008Q1

REPORT INFORMATION
  Report Type: 
  Country: None (occurrence: None)
  Receive Date: 20080129
  Receipt Date: 20080118
  Transmission Date: 20080703
  Serious: Yes (Hospitalization)
  Sender: FDA-Public Use
  Company Number: JP-ROCHE-536622

PATIENT
  Age: 66 Year
  Sex: Female
  Weight: 48 kg

DRUGS (15)
  1. CLONAZEPAM [Suspect]
     Indication: RHEUMATOID ARTHRITIS
     Route: 048
     Dates: start: 20071130, end: 20071208
  2. TAZOCIN [Suspect]
     Indication: DRUG USE FOR UNKNOWN INDICATION
     Route: 041
     Dates: start: 20071122, end: 20071207
  3. TARGOCID [Suspect]
     Indication: DRUG USE FOR UNKNOWN INDICATION
     Route: 041
     Dates: start: 20071122, end: 20071207
  4. BASEN [Concomitant]
     Route: 048
     Dates: end: 20071208
  5. PROMAC [Concomitant]
     Route: 048
     Dates: end: 20071208
  6. CALCIUM LACTATE [Concomitant]
     Route: 048
     Dates: end: 20071208
  7. ZANTAC [Concomitant]
     Route: 048
     Dates: end: 20071208
  8. ONEALFA [Concomitant]
     Dosage: DOSE FORM: ORAL FORMULATION NOT OTHERWISE SPECIFIED
     Route: 048
     Dates: end: 20071208
  9. BONALON [Concomitant]
     Route: 048
     Dates: end: 20071208
  10. PREDNISOLONE [Concomitant]
     Route: 048
  11. DIOVAN [Concomitant]
     Route: 048
     Dates: end: 20071218
  12. ATELEC [Concomitant]
     Route: 048
     Dates: end: 20071218
  13. BIOFERMIN [Concomitant]
     Dosage: FORM: ORAL FORMULATION, NOT OTHERWISE SPECIFIED
     Route: 048
     Dates: end: 20071208
  14. INDOMETHACIN [Concomitant]
     Route: 054
     Dates: start: 20070101, end: 20070101
  15. ZYVOX [Concomitant]
     Route: 048
     Dates: start: 20071208, end: 20071208

REACTIONS (1)
  - STEVENS-JOHNSON SYNDROME [None]
